FAERS Safety Report 12155187 (Version 1)
Quarter: 2016Q1

REPORT INFORMATION
  Report Type: Spontaneous
  Country: US (occurrence: None)
  Receive Date: 20160304
  Receipt Date: 20160304
  Transmission Date: 20160526
  Serious: Yes (Hospitalization)
  Sender: FDA-Public Use
  Company Number: None

PATIENT
  Age: 47 Year
  Sex: Female
  Weight: 90.72 kg

DRUGS (2)
  1. CHLOROQUINE 100MG/5ML [Suspect]
     Active Substance: CHLOROQUINE
     Indication: BREAST CANCER METASTATIC
     Route: 048
     Dates: start: 20160211, end: 20160219
  2. IXEMPRA [Suspect]
     Active Substance: IXABEPILONE
     Indication: BREAST CANCER METASTATIC
     Route: 042
     Dates: start: 20160211, end: 20160211

REACTIONS (6)
  - Norovirus test positive [None]
  - Anaemia of chronic disease [None]
  - Pneumonia [None]
  - Hypokalaemia [None]
  - Blood magnesium decreased [None]
  - Chronic obstructive pulmonary disease [None]

NARRATIVE: CASE EVENT DATE: 20160226
